FAERS Safety Report 9540349 (Version 4)
Quarter: 2014Q2

REPORT INFORMATION
  Report Type: Report from Study
  Country: JP (occurrence: JP)
  Receive Date: 20130920
  Receipt Date: 20140612
  Transmission Date: 20141212
  Serious: Yes (Hospitalization, Other)
  Sender: FDA-Public Use
  Company Number: JP-ABBVIE-13P-087-1042885-00

PATIENT
  Age: 34 Year
  Sex: Male
  Weight: 63.3 kg

DRUGS (8)
  1. HUMIRA [Suspect]
     Indication: CROHN^S DISEASE
     Route: 058
     Dates: start: 20120425, end: 20120425
  2. HUMIRA [Suspect]
     Dates: start: 20120509, end: 20120509
  3. HUMIRA [Suspect]
     Dates: start: 20120523, end: 20120815
  4. MESALAZINE [Concomitant]
     Indication: CROHN^S DISEASE
     Route: 048
  5. FEXOFENADINE HYDROCHLORIDE [Concomitant]
     Indication: HYPERSENSITIVITY
     Route: 048
     Dates: start: 20090610
  6. LIMAPROST ALFADEX [Concomitant]
     Indication: RAYNAUD^S PHENOMENON
     Route: 048
     Dates: start: 20120125
  7. FAMOTIDINE [Concomitant]
     Indication: ULCER
     Route: 048
     Dates: start: 20081203
  8. FAMOTIDINE [Concomitant]
     Indication: PROPHYLAXIS

REACTIONS (9)
  - Collagen disorder [Recovering/Resolving]
  - Dermatomyositis [Unknown]
  - Systemic lupus erythematosus [Unknown]
  - Erythema [Recovered/Resolved]
  - Myalgia [Unknown]
  - Myalgia [Unknown]
  - Muscular weakness [Unknown]
  - Pigmentation disorder [Unknown]
  - Overlap syndrome [Unknown]
